FAERS Safety Report 10402107 (Version 1)
Quarter: 2014Q3

REPORT INFORMATION
  Report Type: Spontaneous
  Country: US (occurrence: None)
  Receive Date: 20140820
  Receipt Date: 20140820
  Transmission Date: 20150326
  Serious: Yes (Disabling)
  Sender: FDA-Public Use
  Company Number: None

PATIENT
  Age: 61 Year
  Sex: Male
  Weight: 79.38 kg

DRUGS (1)
  1. MYCOPHENOLATE MOFETIL. [Suspect]
     Active Substance: MYCOPHENOLATE MOFETIL
     Indication: ALVEOLITIS ALLERGIC
     Dosage: 2 TABS TWICE DAILY TAKEN BY MOUTH
     Route: 048
     Dates: start: 20131008, end: 20140816

REACTIONS (12)
  - Peripheral swelling [None]
  - Feeling abnormal [None]
  - Muscle disorder [None]
  - Alopecia [None]
  - Panic disorder [None]
  - Dyspnoea [None]
  - Contusion [None]
  - Pain in extremity [None]
  - Body height decreased [None]
  - Drug dose omission [None]
  - Drug ineffective [None]
  - Gait disturbance [None]

NARRATIVE: CASE EVENT DATE: 20140819
